FAERS Safety Report 6404372-8 (Version None)
Quarter: 2009Q4

REPORT INFORMATION
  Report Type: 
  Country: None (occurrence: None)
  Receive Date: 20091016
  Receipt Date: 20091006
  Transmission Date: 20100525
  Serious: Yes (Life-Threatening, Hospitalization, Other)
  Sender: FDA-Public Use
  Company Number: US-AMGEN-US369325

PATIENT
  Sex: Female
  Weight: 77.2 kg

DRUGS (9)
  1. ENBREL [Suspect]
     Indication: PSORIASIS
     Route: 058
     Dates: start: 20060222, end: 20070101
  2. POTASSIUM CHLORIDE [Concomitant]
  3. TEMOVATE [Concomitant]
     Dates: start: 20060222
  4. DOVONEX [Concomitant]
     Dates: start: 20060222
  5. PREDNISONE [Concomitant]
     Dates: start: 20060222
  6. MOBIC [Concomitant]
     Dates: start: 20060222
  7. LEVOXYL [Concomitant]
  8. METHOTREXATE [Concomitant]
     Dates: start: 20011214
  9. EUCERIN [Concomitant]
     Route: 061

REACTIONS (40)
  - ATRIAL FIBRILLATION [None]
  - CARDIAC FAILURE CONGESTIVE [None]
  - CARDIOGENIC SHOCK [None]
  - CARDIOMEGALY [None]
  - CELLULITIS [None]
  - CEREBROVASCULAR ACCIDENT [None]
  - CHOLELITHIASIS [None]
  - CHRONIC OBSTRUCTIVE PULMONARY DISEASE [None]
  - CORONARY ARTERY DISEASE [None]
  - DEPRESSION [None]
  - DERMATITIS PSORIASIFORM [None]
  - DRUG ERUPTION [None]
  - ENDOCARDITIS STAPHYLOCOCCAL [None]
  - GASTROINTESTINAL HAEMORRHAGE [None]
  - GASTROOESOPHAGEAL REFLUX DISEASE [None]
  - HEART VALVE INCOMPETENCE [None]
  - HYPERKALAEMIA [None]
  - HYPERTENSION [None]
  - LARYNGEAL STENOSIS [None]
  - LUNG INFECTION PSEUDOMONAL [None]
  - LYMPHADENOPATHY [None]
  - MALNUTRITION [None]
  - MENINGITIS STAPHYLOCOCCAL [None]
  - MENTAL DISORDER [None]
  - MYOCARDIAL INFARCTION [None]
  - PLEURAL EFFUSION [None]
  - PSORIASIS [None]
  - PULMONARY HYPERTENSION [None]
  - RENAL FAILURE ACUTE [None]
  - RENAL FAILURE CHRONIC [None]
  - RESPIRATORY FAILURE [None]
  - SEPTIC SHOCK [None]
  - STAPHYLOCOCCAL SCALDED SKIN SYNDROME [None]
  - THROMBOCYTOPENIA [None]
  - TOOTH FRACTURE [None]
  - TOOTH INFECTION [None]
  - TRICUSPID VALVE INCOMPETENCE [None]
  - UPPER RESPIRATORY TRACT INFECTION [None]
  - VISION BLURRED [None]
  - WEIGHT INCREASED [None]
